FAERS Safety Report 25251059 (Version 1)
Quarter: 2025Q2

REPORT INFORMATION
  Report Type: Spontaneous
  Country: US (occurrence: None)
  Receive Date: 20250429
  Receipt Date: 20250429
  Transmission Date: 20250717
  Serious: Yes (Hospitalization)
  Sender: FDA-CTU
  Company Number: None

PATIENT
  Age: 58 Year
  Sex: Male

DRUGS (1)
  1. FOTIVDA [Suspect]
     Active Substance: TIVOZANIB HYDROCHLORIDE
     Route: 048
     Dates: start: 20250307, end: 20250330

REACTIONS (3)
  - Hypertensive emergency [None]
  - Posterior reversible encephalopathy syndrome [None]
  - Brain oedema [None]

NARRATIVE: CASE EVENT DATE: 20250329
